FAERS Safety Report 16672776 (Version 1)
Quarter: 2019Q3

REPORT INFORMATION
  Report Type: Spontaneous
  Country: GB (occurrence: GB)
  Receive Date: 20190806
  Receipt Date: 20190806
  Transmission Date: 20191004
  Serious: Yes (Other)
  Sender: FDA-Public Use
  Company Number: GB-MYLANLABS-2019M1072886

PATIENT
  Age: 68 Year
  Sex: Male
  Weight: 113 kg

DRUGS (7)
  1. ISOSORBIDE 5-MONONITRATO GEN MED [Concomitant]
     Dosage: UNK
  2. ATORVASTATIN [Concomitant]
     Active Substance: ATORVASTATIN
     Dosage: UNK
  3. IBUPROFEN. [Suspect]
     Active Substance: IBUPROFEN
     Indication: PRODUCT USED FOR UNKNOWN INDICATION
     Dosage: 1200 MILLIGRAM, QD
     Route: 048
     Dates: start: 20151114, end: 20180511
  4. CITALOPRAM HYDROCHLORIDE [Concomitant]
     Active Substance: CITALOPRAM HYDROCHLORIDE
     Dosage: UNK
  5. NICORANDIL [Suspect]
     Active Substance: NICORANDIL
     Indication: ANGINA UNSTABLE
     Dosage: 60 MILLIGRAM, QD
     Route: 048
     Dates: start: 20150515, end: 20180511
  6. RENAVIT [Concomitant]
     Dosage: UNK
  7. ACETYLSALICYLIC ACID [Concomitant]
     Active Substance: ASPIRIN
     Dosage: UNK

REACTIONS (4)
  - Rectal haemorrhage [Recovered/Resolved]
  - Diarrhoea [Recovered/Resolved]
  - Faecal calprotectin abnormal [Recovered/Resolved]
  - Abnormal loss of weight [Recovered/Resolved]

NARRATIVE: CASE EVENT DATE: 20180304
